FAERS Safety Report 22266226 (Version 1)
Quarter: 2023Q2

REPORT INFORMATION
  Report Type: Spontaneous
  Country: US (occurrence: None)
  Receive Date: 20230426
  Receipt Date: 20230426
  Transmission Date: 20230721
  Serious: Yes (Hospitalization)
  Sender: FDA-Public Use
  Company Number: None

PATIENT
  Sex: Male

DRUGS (1)
  1. RETACRIT [Suspect]
     Active Substance: EPOETIN ALFA-EPBX
     Indication: Anaemia
     Dosage: 40,000U EVERY 14 DAYS SUBCUTANEOUS?
     Route: 058
     Dates: start: 20230424

REACTIONS (7)
  - Anaemia [None]
  - Therapy interrupted [None]
  - Insurance issue [None]
  - Fatigue [None]
  - Asthenia [None]
  - Jaundice [None]
  - Haemoglobin decreased [None]
